FAERS Safety Report 19833894 (Version 1)
Quarter: 2021Q3

REPORT INFORMATION
  Report Type: Report from Study
  Country: TN (occurrence: TN)
  Receive Date: 20210915
  Receipt Date: 20210915
  Transmission Date: 20211014
  Serious: Yes (Death)
  Sender: FDA-Public Use
  Company Number: TN-MYLANLABS-2021M1062280

PATIENT
  Age: 63 Year
  Sex: Male

DRUGS (3)
  1. 5?FLUOROURACIL                     /00098801/ [Suspect]
     Active Substance: FLUOROURACIL
     Indication: LARYNGEAL CANCER
     Dosage: 750 MILLIGRAM/SQ. METER, CYCLE, FOR 5 DAYS; ADMINISTERED EVERY 21 DAYS
     Route: 065
  2. DOCETAXEL. [Suspect]
     Active Substance: DOCETAXEL
     Indication: LARYNGEAL CANCER
     Dosage: 75 MILLIGRAM/SQ. METER, CYCLE, ON DAY 1; ADMINISTERED EVERY 21 DAYS
     Route: 065
  3. CISPLATIN. [Suspect]
     Active Substance: CISPLATIN
     Indication: LARYNGEAL CANCER
     Dosage: 75 MILLIGRAM/SQ. METER, CYCLE, ON DAY 1; ADMINISTERED EVERY 21 DAYS
     Route: 065

REACTIONS (3)
  - Vomiting [Fatal]
  - Acute kidney injury [Fatal]
  - Febrile bone marrow aplasia [Fatal]
